FAERS Safety Report 7864785-4 (Version None)
Quarter: 2011Q4

REPORT INFORMATION
  Report Type: 
  Country: None (occurrence: None)
  Receive Date: 20111028
  Receipt Date: 20111020
  Transmission Date: 20120403
  Serious: Yes (Death)
  Sender: FDA-Public Use
  Company Number: JP-CELGENEUS-087-50794-11072522

PATIENT
  Age: 66 Year
  Sex: Female

DRUGS (15)
  1. LEVOFLOXACIN [Concomitant]
     Dosage: 300 MILLIGRAM
     Route: 048
  2. FOLIC ACID [Concomitant]
     Dosage: 15 MILLIGRAM
     Route: 048
  3. VIDAZA [Suspect]
     Indication: MYELODYSPLASTIC SYNDROME
     Dosage: 75 MILLIGRAM/SQ. METER
     Route: 058
     Dates: start: 20110426, end: 20110501
  4. LEVOFLOXACIN [Concomitant]
     Dosage: 20 MILLIGRAM
     Route: 048
  5. ANTIBIOTICS [Concomitant]
     Route: 065
     Dates: start: 20110501
  6. VALTREX [Concomitant]
     Dosage: 500 MILLIGRAM
     Route: 048
  7. MEROPENEM [Concomitant]
     Dosage: 2 GRAM
     Route: 041
     Dates: start: 20110502
  8. PYRINAZIN [Concomitant]
     Dosage: 1.5 GRAM
     Route: 048
  9. SODIUM BICARBONATE [Concomitant]
     Route: 065
     Dates: start: 20110427, end: 20110501
  10. VANCOMYCIN HCL [Concomitant]
     Dosage: 1 GRAM
     Route: 041
     Dates: start: 20110502
  11. NEO-MINOPHAGEN C [Concomitant]
     Dosage: 20 MILLILITER
     Route: 041
     Dates: start: 20110516, end: 20110516
  12. MAGNESIUM SULFATE [Concomitant]
     Dosage: 15 MILLIGRAM
     Route: 048
  13. LAXOBERON [Concomitant]
     Route: 048
  14. POLARAMINE [Concomitant]
     Dosage: 5 MILLILITER
     Route: 041
     Dates: start: 20110516, end: 20110516
  15. LASIX [Concomitant]
     Dosage: 10 MILLIGRAM
     Route: 041
     Dates: start: 20110427

REACTIONS (2)
  - SEPSIS [None]
  - BRONCHOPULMONARY ASPERGILLOSIS [None]
